FAERS Safety Report 24731730 (Version 2)
Quarter: 2025Q1

REPORT INFORMATION
  Report Type: Report from Study
  Country: JP (occurrence: JP)
  Receive Date: 20241213
  Receipt Date: 20250218
  Transmission Date: 20250408
  Serious: No
  Sender: ELI LILLY AND COMPANY
  Company Number: JP-ELI_LILLY_AND_COMPANY-JP202412006825

PATIENT
  Age: 45 Year
  Sex: Male

DRUGS (5)
  1. OLUMIANT [Suspect]
     Active Substance: BARICITINIB
     Indication: Juvenile idiopathic arthritis
     Dosage: 4 MG, DAILY
     Route: 048
     Dates: start: 20240430, end: 20241210
  2. LOXOPROFEN SODIUM [Concomitant]
     Active Substance: LOXOPROFEN SODIUM
     Indication: Juvenile idiopathic arthritis
     Dates: start: 20240625
  3. GASTER [Concomitant]
     Active Substance: FAMOTIDINE
     Indication: Prophylaxis
  4. RAMOSETRON HYDROCHLORIDE [Concomitant]
     Active Substance: RAMOSETRON HYDROCHLORIDE
  5. BIO-THREE [Concomitant]
     Active Substance: HERBALS

REACTIONS (1)
  - Parotid gland enlargement [Not Recovered/Not Resolved]

NARRATIVE: CASE EVENT DATE: 20241210
